FAERS Safety Report 8544203-3 (Version None)
Quarter: 2012Q3

REPORT INFORMATION
  Report Type: 
  Country: None (occurrence: None)
  Receive Date: 20120727
  Receipt Date: 20120723
  Transmission Date: 20120928
  Serious: Yes (Other)
  Sender: FDA-Public Use
  Company Number: PHEH2012US014458

PATIENT
  Sex: Female
  Weight: 82.993 kg

DRUGS (14)
  1. PROVENTIL-HFA [Concomitant]
     Dosage: UNK UKN, UNK
  2. GILENYA [Suspect]
     Dosage: 0.5 MG, QD
     Route: 048
  3. GENOTROPIN [Concomitant]
     Dosage: 0.2 MG, UNK
  4. ADVAIR [Concomitant]
     Dosage: UNK UKN, UNK
  5. KLOR-CON [Concomitant]
     Dosage: UNK UKN, UNK
  6. TYLENOL [Concomitant]
     Dosage: 325 MG, UNK
  7. VITAMIN B-12 [Concomitant]
     Dosage: UNK UKN, UNK
  8. LOZ [Concomitant]
     Dosage: 50 UG, UNK
  9. KEPPRA [Concomitant]
     Dosage: 250 MG, UNK
  10. BONIVA [Concomitant]
     Dosage: 2.5 MG, UNK
  11. REGLAN [Concomitant]
     Dosage: 5 MG, UNK
  12. SPIRIVA [Concomitant]
     Dosage: UNK UKN, UNK
  13. HYDROCORT [Concomitant]
     Dosage: 5 MG, UNK
  14. SYNTHROID [Concomitant]
     Dosage: 25 UG, UNK

REACTIONS (1)
  - CENTRAL NERVOUS SYSTEM LESION [None]
